FAERS Safety Report 4604327-X (Version None)
Quarter: 2005Q1

REPORT INFORMATION
  Report Type: 
  Country: None (occurrence: None)
  Receive Date: 20050214
  Receipt Date: 20041119
  Transmission Date: 20050727
  Serious: No
  Sender: FDA-Public Use
  Company Number: USA041184290

PATIENT
  Age: 62 Year
  Sex: Male
  Weight: 89 kg

DRUGS (1)
  1. CIALIS [Suspect]
     Dosage: 10 MG AS NEEDED
     Dates: start: 20041001, end: 20041001

REACTIONS (4)
  - DISCOMFORT [None]
  - EYE PAIN [None]
  - FACIAL PAIN [None]
  - FLUSHING [None]
